FAERS Safety Report 7298215-0 (Version None)
Quarter: 2011Q1

REPORT INFORMATION
  Report Type: 
  Country: None (occurrence: None)
  Receive Date: 20110214
  Receipt Date: 20110214
  Transmission Date: 20110831
  Serious: Yes (Other)
  Sender: FDA-Public Use
  Company Number: None

PATIENT
  Age: 62 Year
  Sex: Male
  Weight: 83.9154 kg

DRUGS (1)
  1. AVELOX [Suspect]
     Indication: BRONCHITIS BACTERIAL
     Dosage: 400MG ONCE A DAY PO
     Route: 048
     Dates: start: 20110204, end: 20110209

REACTIONS (4)
  - JOINT SWELLING [None]
  - DYSURIA [None]
  - NERVOUSNESS [None]
  - ANXIETY [None]
